FAERS Safety Report 7406885-9 (Version None)
Quarter: 2011Q2

REPORT INFORMATION
  Report Type: 
  Country: None (occurrence: None)
  Receive Date: 20110411
  Receipt Date: 20110407
  Transmission Date: 20111010
  Serious: Yes (Other)
  Sender: FDA-Public Use
  Company Number: JP-PFIZER INC-2011065029

PATIENT
  Age: 65 Year
  Sex: Male

DRUGS (1)
  1. CABASER [Suspect]
     Indication: PARKINSON'S DISEASE
     Dosage: 2 MG/DAY
     Route: 048

REACTIONS (1)
  - INTERSTITIAL LUNG DISEASE [None]
